FAERS Safety Report 18655315 (Version 1)
Quarter: 2020Q4

REPORT INFORMATION
  Report Type: Spontaneous
  Country: US (occurrence: US)
  Receive Date: 20201223
  Receipt Date: 20201223
  Transmission Date: 20210114
  Serious: No
  Sender: FDA-Public Use
  Company Number: US-PFIZER INC-2020502820

PATIENT
  Sex: Female

DRUGS (3)
  1. ALPRAZOLAM. [Suspect]
     Active Substance: ALPRAZOLAM
     Dosage: 0.5 MG, 3X/DAY(TAKE 1 EVERY 8 HOURS/TAKING THE 0.5MG AT 8AM, 4PM AND 12AM)
  2. ALPRAZOLAM. [Suspect]
     Active Substance: ALPRAZOLAM
     Dosage: 0.25 MG[TAKING 0.25MG 1 1/2 TABLETS EVERY 5 1/2 HOURS DEPENDING ON HOW SHE FELT]
  3. ALPRAZOLAM. [Suspect]
     Active Substance: ALPRAZOLAM
     Dosage: ONLY HALF A TABLET AND THEN AN HOUR LATER IF SHE NEEDS THE OTHER HALF, SHE CAN TAKE IT

REACTIONS (6)
  - Sedation [Unknown]
  - Hyperhidrosis [Unknown]
  - Constipation [Unknown]
  - Loss of personal independence in daily activities [Unknown]
  - Intentional product misuse [Unknown]
  - Confusional state [Unknown]
